FAERS Safety Report 9217931 (Version 1)
Quarter: 2013Q2

REPORT INFORMATION
  Report Type: Spontaneous
  Country: JP (occurrence: JP)
  Receive Date: 20130408
  Receipt Date: 20130408
  Transmission Date: 20140414
  Serious: Yes (Death)
  Sender: FDA-Public Use
  Company Number: JP-TEVA-395307ISR

PATIENT
  Age: 67 Year
  Sex: Male

DRUGS (1)
  1. FUROSEMIDE [Suspect]
     Dates: start: 201204, end: 201204

REACTIONS (1)
  - Toxic epidermal necrolysis [Fatal]
